FAERS Safety Report 8496183-7 (Version None)
Quarter: 2012Q3

REPORT INFORMATION
  Report Type: 
  Country: None (occurrence: None)
  Receive Date: 20120709
  Receipt Date: 20120705
  Transmission Date: 20120928
  Serious: Yes (Other)
  Sender: FDA-Public Use
  Company Number: PHHY2012ES057818

PATIENT
  Age: 26 Year
  Sex: Male

DRUGS (3)
  1. AZATHIOPRINE [Suspect]
     Indication: CROHN'S DISEASE
     Dosage: UNK
     Dates: start: 20020601
  2. PREDNISONE [Suspect]
     Indication: CROHN'S DISEASE
     Dosage: UNK
     Dates: start: 20020101
  3. MESALAMINE [Concomitant]

REACTIONS (1)
  - LYMPHOPENIA [None]
